FAERS Safety Report 13554677 (Version 1)
Quarter: 2017Q2

REPORT INFORMATION
  Report Type: Spontaneous
  Country: US (occurrence: US)
  Receive Date: 20170516
  Receipt Date: 20170516
  Transmission Date: 20170830
  Serious: No
  Sender: FDA-Public Use
  Company Number: None

PATIENT
  Age: 4 Year
  Sex: Male

DRUGS (9)
  1. EPIPEN JR [Concomitant]
     Active Substance: EPINEPHRINE
  2. SILDENAFIL. [Concomitant]
     Active Substance: SILDENAFIL
  3. FUROSEMIDE. [Concomitant]
     Active Substance: FUROSEMIDE
  4. ENALAPRIL [Concomitant]
     Active Substance: ENALAPRIL
  5. ALBUTEROL. [Concomitant]
     Active Substance: ALBUTEROL
  6. WARFARIN [Concomitant]
     Active Substance: WARFARIN
  7. OPSUMIT [Suspect]
     Active Substance: MACITENTAN
     Indication: PULMONARY EMBOLISM
     Dosage: 10MG 1/2 TAB QD ORAL
     Route: 048
     Dates: start: 20170428, end: 20170516
  8. BUDESONIDE. [Concomitant]
     Active Substance: BUDESONIDE
  9. SPIRONOLACTONE. [Concomitant]
     Active Substance: SPIRONOLACTONE

REACTIONS (1)
  - Off label use [None]

NARRATIVE: CASE EVENT DATE: 20170516
